FAERS Safety Report 6603716-1 (Version None)
Quarter: 2010Q1

REPORT INFORMATION
  Report Type: 
  Country: None (occurrence: None)
  Receive Date: 20100226
  Receipt Date: 20090306
  Transmission Date: 20100710
  Serious: No
  Sender: FDA-Public Use
  Company Number: A0755599A

PATIENT
  Age: 34 Year
  Sex: Female
  Weight: 71.4 kg

DRUGS (5)
  1. LAMICTAL CD [Suspect]
     Indication: BIPOLAR DISORDER
     Route: 048
     Dates: start: 20070101, end: 20080801
  2. VITAMIN TAB [Concomitant]
     Dosage: 1TAB PER DAY
     Route: 048
  3. VITAMIN B COMPLEX CAP [Concomitant]
     Dosage: 1TAB PER DAY
     Route: 048
     Dates: start: 20080226
  4. ALFALFA [Concomitant]
     Dosage: 650MG TWICE PER DAY
     Dates: start: 20080714
  5. LOVAZA [Concomitant]
     Dosage: 1TAB PER DAY
     Route: 048
     Dates: start: 20080226

REACTIONS (2)
  - DRUG EXPOSURE DURING PREGNANCY [None]
  - LIVE BIRTH [None]
